FAERS Safety Report 12400356 (Version 1)
Quarter: 2016Q2

REPORT INFORMATION
  Report Type: Spontaneous
  Country: IT (occurrence: IT)
  Receive Date: 20160525
  Receipt Date: 20160525
  Transmission Date: 20160815
  Serious: Yes (Other)
  Sender: FDA-Public Use
  Company Number: IT-ROCHE-1760141

PATIENT
  Age: 59 Year
  Sex: Male

DRUGS (1)
  1. VEMURAFENIB [Suspect]
     Active Substance: VEMURAFENIB
     Indication: FOLLICULAR DENDRITIC CELL SARCOMA
     Route: 065

REACTIONS (5)
  - Stomatitis [Unknown]
  - Diarrhoea [Recovering/Resolving]
  - Skin toxicity [Unknown]
  - Hypokalaemia [Unknown]
  - Electrocardiogram QT prolonged [Unknown]
